FAERS Safety Report 6192582-7 (Version None)
Quarter: 2009Q2

REPORT INFORMATION
  Report Type: 
  Country: None (occurrence: None)
  Receive Date: 20090518
  Receipt Date: 20070518
  Transmission Date: 20091009
  Serious: Yes (Hospitalization, Other)
  Sender: FDA-Public Use
  Company Number: US-ASTRAZENECA-2006UW22579

PATIENT
  Age: 44 Year
  Sex: Male
  Weight: 133.4 kg

DRUGS (25)
  1. SEROQUEL [Suspect]
     Indication: SCHIZOPHRENIA
     Dosage: 25-700 MG
     Route: 048
     Dates: start: 19990208
  2. SEROQUEL [Suspect]
     Indication: BIPOLAR I DISORDER
     Dosage: 25-700 MG
     Route: 048
     Dates: start: 19990208
  3. SEROQUEL [Suspect]
     Indication: BIPOLAR DISORDER
     Dosage: 25-700 MG
     Route: 048
     Dates: start: 19990208
  4. SEROQUEL [Suspect]
     Dosage: 100 TO 200MG
     Route: 048
     Dates: start: 19990101
  5. SEROQUEL [Suspect]
     Dosage: 100 TO 200MG
     Route: 048
     Dates: start: 19990101
  6. SEROQUEL [Suspect]
     Dosage: 100 TO 200MG
     Route: 048
     Dates: start: 19990101
  7. HALDOL [Concomitant]
     Route: 065
     Dates: start: 19880101, end: 19930101
  8. RISPERDAL [Concomitant]
     Route: 065
     Dates: start: 19940101, end: 19950101
  9. PROLIXIN [Concomitant]
     Dosage: 5-10 MG
     Route: 048
  10. COGENTIN [Concomitant]
     Route: 048
  11. LOTENSIN [Concomitant]
     Route: 048
  12. CLARITIN [Concomitant]
     Route: 048
  13. AVANDIA [Concomitant]
     Dosage: 4-8 MG
     Route: 048
  14. VASOTEC [Concomitant]
     Dosage: 10-20 MG
     Route: 048
  15. INSULIN [Concomitant]
     Dosage: 10 UNIT
     Route: 058
  16. ALLOPURINOL [Concomitant]
     Route: 048
  17. LOPRESSOR [Concomitant]
     Route: 048
  18. ZOCOR [Concomitant]
     Route: 048
  19. PROPRANOLOL HYDROCHLORIDE [Concomitant]
     Route: 048
  20. ALBUTEROL [Concomitant]
     Dosage: 2.5 MG/3 ML
     Route: 045
  21. PROTONIX [Concomitant]
     Route: 048
  22. NORVASC [Concomitant]
     Route: 048
  23. METFORMIN HCL [Concomitant]
     Route: 048
  24. CLONIDINE [Concomitant]
     Dosage: 0.1-0.3 MG
     Route: 048
  25. GLIPIZIDE [Concomitant]
     Route: 048

REACTIONS (23)
  - ANAEMIA [None]
  - ARTHRALGIA [None]
  - ASTHENIA [None]
  - BACK PAIN [None]
  - CEREBROVASCULAR ACCIDENT [None]
  - CHEST PAIN [None]
  - DEHYDRATION [None]
  - DIABETES MELLITUS [None]
  - DIZZINESS [None]
  - DYSPNOEA [None]
  - HAEMOPTYSIS [None]
  - HEADACHE [None]
  - HYPOGLYCAEMIA [None]
  - HYPOTENSION [None]
  - NAUSEA [None]
  - NOCTURIA [None]
  - OESOPHAGITIS [None]
  - OROPHARYNGEAL PAIN [None]
  - PAIN IN EXTREMITY [None]
  - PEPTIC ULCER [None]
  - PROSTATISM [None]
  - PROTEINURIA [None]
  - PULMONARY OEDEMA [None]
